FAERS Safety Report 5092374-6 (Version None)
Quarter: 2006Q3

REPORT INFORMATION
  Report Type: 
  Country: None (occurrence: None)
  Receive Date: 20060825
  Receipt Date: 20060808
  Transmission Date: 20061208
  Serious: Yes (Death)
  Sender: FDA-Public Use
  Company Number: US200608001790

PATIENT
  Sex: Male

DRUGS (2)
  1. FORTEO [Suspect]
     Indication: OSTEOPOROSIS
     Dosage: 20 UG,
     Dates: start: 20060101, end: 20060717
  2. FORTEO [Concomitant]

REACTIONS (3)
  - CONDITION AGGRAVATED [None]
  - LARGE INTESTINAL HAEMORRHAGE [None]
  - PULMONARY FIBROSIS [None]
